FAERS Safety Report 21796881 (Version 2)
Quarter: 2023Q1

REPORT INFORMATION
  Report Type: Report from Study
  Country: US (occurrence: US)
  Receive Date: 20221230
  Receipt Date: 20230124
  Transmission Date: 20230417
  Serious: No
  Sender: FDA-Public Use
  Company Number: US-ACADIA PHARMACEUTICALS INC.-ACA-2022-PIM-004268

PATIENT
  Age: 79 Year
  Sex: Female

DRUGS (29)
  1. NUPLAZID [Suspect]
     Active Substance: PIMAVANSERIN TARTRATE
     Indication: Parkinson^s disease psychosis
     Dosage: 34 MILLIGRAM, QD
     Route: 065
     Dates: start: 20221117
  2. NUPLAZID [Suspect]
     Active Substance: PIMAVANSERIN TARTRATE
     Indication: Hallucination
     Dosage: 34 MILLIGRAM, QD
     Route: 048
     Dates: start: 20221207
  3. NUPLAZID [Suspect]
     Active Substance: PIMAVANSERIN TARTRATE
     Indication: Delusion
  4. NUPLAZID [Suspect]
     Active Substance: PIMAVANSERIN TARTRATE
     Indication: Parkinson^s disease psychosis
  5. ALBUTEROL SULFATE [Concomitant]
     Active Substance: ALBUTEROL SULFATE
  6. CALCIUM [Concomitant]
     Active Substance: CALCIUM
  7. CARBIDOPA LEVODOPA [Concomitant]
     Active Substance: CARBIDOPA\LEVODOPA
  8. CHOLECALCIFEROL [Concomitant]
     Active Substance: CHOLECALCIFEROL
  9. CYANOCOBALAMIN [Concomitant]
     Active Substance: CYANOCOBALAMIN
  10. DIAZEPAM [Concomitant]
     Active Substance: DIAZEPAM
  11. DULOXETINE [Concomitant]
     Active Substance: DULOXETINE
  12. FOLIC ACID [Concomitant]
     Active Substance: FOLIC ACID
  13. GABAPENTIN [Concomitant]
     Active Substance: GABAPENTIN
  14. INSULIN NOS [Concomitant]
     Active Substance: INSULIN NOS
  15. IPRATROPIUM BROMIDE [Concomitant]
     Active Substance: IPRATROPIUM BROMIDE
  16. LANTUS [Concomitant]
     Active Substance: INSULIN GLARGINE
  17. LISINOPRIL [Concomitant]
     Active Substance: LISINOPRIL
  18. MEMANTINE [Concomitant]
     Active Substance: MEMANTINE
  19. METFORMIN [Concomitant]
     Active Substance: METFORMIN HYDROCHLORIDE
  20. PANTOPRAZOLE [Concomitant]
     Active Substance: PANTOPRAZOLE
  21. HIGH DENSITY POLYETHYLENE [Concomitant]
     Active Substance: HIGH DENSITY POLYETHYLENE
  22. GLYCOL [ETHYLENE GLYCOL] [Concomitant]
  23. PROPRANOLOL [Concomitant]
     Active Substance: PROPRANOLOL HYDROCHLORIDE
     Dosage: ER
  24. QUETIAPINE [Concomitant]
     Active Substance: QUETIAPINE
  25. SIMVASTATIN [Concomitant]
     Active Substance: SIMVASTATIN
  26. VASCEPA [Concomitant]
     Active Substance: ICOSAPENT ETHYL
  27. solostar pen [Concomitant]
  28. HUMALOG [Concomitant]
     Active Substance: INSULIN LISPRO
  29. LUMIGAN [Concomitant]
     Active Substance: BIMATOPROST

REACTIONS (10)
  - Gastric disorder [Not Recovered/Not Resolved]
  - Musculoskeletal stiffness [Not Recovered/Not Resolved]
  - Product dose omission issue [Unknown]
  - Feeling abnormal [Not Recovered/Not Resolved]
  - Malaise [Not Recovered/Not Resolved]
  - Hypokinesia [Not Recovered/Not Resolved]
  - Rash [Not Recovered/Not Resolved]
  - Hallucination [Unknown]
  - Confusional state [Not Recovered/Not Resolved]
  - Somnolence [Not Recovered/Not Resolved]

NARRATIVE: CASE EVENT DATE: 20221201
